FAERS Safety Report 10219142 (Version 2)
Quarter: 2015Q1

REPORT INFORMATION
  Report Type: Spontaneous
  Country: US (occurrence: US)
  Receive Date: 20140605
  Receipt Date: 20150226
  Transmission Date: 20150720
  Serious: Yes (Other)
  Sender: FDA-Public Use
  Company Number: PHHY2014US067198

PATIENT
  Age: 18 Year
  Sex: Male

DRUGS (8)
  1. LIORESAL [Suspect]
     Active Substance: BACLOFEN
     Dosage: 239.9 UG,DAILY
     Route: 037
     Dates: start: 20140416
  2. LIORESAL [Suspect]
     Active Substance: BACLOFEN
     Indication: MUSCLE SPASTICITY
     Dosage: 1800.2 UG, DAILY
     Route: 037
     Dates: start: 20010824
  3. LIORESAL [Suspect]
     Active Substance: BACLOFEN
     Dosage: 415.5 UG, DAILY
     Route: 037
     Dates: start: 20140508
  4. LEVETIRACETAM. [Suspect]
     Active Substance: LEVETIRACETAM
     Indication: PRODUCT USED FOR UNKNOWN INDICATION
     Dosage: UNK UKN, BID
     Route: 048
  5. LIORESAL [Suspect]
     Active Substance: BACLOFEN
     Dosage: 499.4 UG, DAILY
     Route: 037
     Dates: start: 20140514
  6. MIRALAX [Suspect]
     Active Substance: POLYETHYLENE GLYCOL 3350
     Dosage: 17 G, QD (DAILY), AS NEEDED
     Route: 065
  7. LIORESAL [Suspect]
     Active Substance: BACLOFEN
     Dosage: 12.2 UG, DAILY
     Route: 037
  8. LIORESAL [Suspect]
     Active Substance: BACLOFEN
     Dosage: 288.3 UG,DAILY
     Route: 037
     Dates: start: 20140502

REACTIONS (1)
  - Muscle spasticity [Unknown]

NARRATIVE: CASE EVENT DATE: 20140414
